FAERS Safety Report 7964577-1 (Version None)
Quarter: 2011Q4

REPORT INFORMATION
  Report Type: 
  Country: None (occurrence: None)
  Receive Date: 20111208
  Receipt Date: 20111130
  Transmission Date: 20120403
  Serious: Yes (Hospitalization, Other)
  Sender: FDA-Public Use
  Company Number: JP-JNJFOC-20110808254

PATIENT
  Sex: Male
  Weight: 56 kg

DRUGS (18)
  1. DOXORUBICIN HCL [Suspect]
     Route: 042
     Dates: start: 20101130, end: 20101130
  2. RABEPRAZOLE SODIUM [Concomitant]
     Indication: PRODUCT USED FOR UNKNOWN INDICATION
     Route: 048
  3. FLAGYL [Concomitant]
     Indication: PRODUCT USED FOR UNKNOWN INDICATION
     Route: 048
     Dates: end: 20100806
  4. DOXORUBICIN HCL [Suspect]
     Indication: KAPOSI'S SARCOMA AIDS RELATED
     Route: 042
     Dates: start: 20101109, end: 20101109
  5. LITHIUM CARBONATE [Concomitant]
     Indication: PRODUCT USED FOR UNKNOWN INDICATION
     Route: 048
  6. DOXORUBICIN HCL [Suspect]
     Route: 042
     Dates: start: 20110125, end: 20110125
  7. ISENTRESS [Concomitant]
     Indication: HIV INFECTION
     Route: 048
     Dates: start: 20100629
  8. DECADRON [Concomitant]
     Indication: INFUSION RELATED REACTION
     Route: 042
     Dates: start: 20100805, end: 20100805
  9. TRUVADA [Concomitant]
     Indication: HIV INFECTION
     Route: 048
     Dates: start: 20100624
  10. CEFAZOLIN SODIUM [Concomitant]
     Indication: PRODUCT USED FOR UNKNOWN INDICATION
     Route: 048
     Dates: end: 20101222
  11. BROTIZOLAM [Concomitant]
     Indication: PRODUCT USED FOR UNKNOWN INDICATION
     Route: 048
  12. SODIUM BICARBONATE [Concomitant]
     Indication: PRODUCT USED FOR UNKNOWN INDICATION
     Route: 049
  13. DOXORUBICIN HCL [Suspect]
     Route: 042
     Dates: start: 20100805, end: 20100805
  14. AMOBAN [Concomitant]
     Indication: PRODUCT USED FOR UNKNOWN INDICATION
     Route: 048
  15. RAMELTEON [Concomitant]
     Indication: VOMITING
     Route: 042
     Dates: start: 20100805, end: 20100805
  16. DOXORUBICIN HCL [Suspect]
     Route: 042
     Dates: start: 20101221, end: 20101221
  17. FOSCAVIR [Concomitant]
     Indication: CYTOMEGALOVIRUS CHORIORETINITIS
     Route: 042
     Dates: start: 20100805, end: 20100816
  18. VALGANCICLOVIR [Concomitant]
     Indication: CYTOMEGALOVIRUS CHORIORETINITIS
     Route: 065

REACTIONS (4)
  - VOMITING [None]
  - CYTOMEGALOVIRUS CHORIORETINITIS [None]
  - INFUSION RELATED REACTION [None]
  - NAUSEA [None]
